FAERS Safety Report 12719601 (Version 3)
Quarter: 2016Q4

REPORT INFORMATION
  Report Type: Spontaneous
  Country: JP (occurrence: JP)
  Receive Date: 20160907
  Receipt Date: 20161020
  Transmission Date: 20170207
  Serious: Yes (Other)
  Sender: FDA-Public Use
  Company Number: PHJP2016JP024917

PATIENT
  Age: 75 Year
  Sex: Female

DRUGS (2)
  1. FEMARA [Suspect]
     Active Substance: LETROZOLE
     Indication: BREAST CANCER
     Dosage: 5 MG, UNK
     Route: 048
  2. VASOLAN [Concomitant]
     Active Substance: VERAPAMIL HYDROCHLORIDE
     Indication: CARDIOMYOPATHY
     Route: 065

REACTIONS (7)
  - Angiopathy [Unknown]
  - Arrhythmia [Unknown]
  - Erythema [Recovered/Resolved]
  - Cataract [Recovered/Resolved]
  - Sciatica [Unknown]
  - Tachycardia [Unknown]
  - Graft thrombosis [Unknown]

NARRATIVE: CASE EVENT DATE: 20160501
